FAERS Safety Report 17780066 (Version 1)
Quarter: 2020Q2

REPORT INFORMATION
  Report Type: Report from Study
  Country: US (occurrence: US)
  Receive Date: 20200513
  Receipt Date: 20200513
  Transmission Date: 20200714
  Serious: Yes (Life-Threatening, Hospitalization, Disabling, Other)
  Sender: FDA-Public Use
  Company Number: US-BIOVITRUM-2013US0243

PATIENT
  Age: 12 Year
  Sex: Male
  Weight: 19 kg

DRUGS (3)
  1. ANAKINRA [Suspect]
     Active Substance: ANAKINRA
     Dates: start: 20120117
  2. ANAKINRA [Suspect]
     Active Substance: ANAKINRA
     Indication: DEFICIENCY OF THE INTERLEUKIN-1 RECEPTOR ANTAGONIST
     Dosage: THE ANAKINRA DOSE ADMINISTERED SINCE THE START AND THE LAST STUDY VISIT RANGED BETWEEN 1 MG/KG/DAY A
     Dates: start: 20080730
  3. ANAKINRA [Suspect]
     Active Substance: ANAKINRA
     Dates: start: 201106

REACTIONS (1)
  - Subarachnoid haemorrhage [Recovered/Resolved with Sequelae]

NARRATIVE: CASE EVENT DATE: 20110308
